FAERS Safety Report 22390839 (Version 1)
Quarter: 2023Q2

REPORT INFORMATION
  Report Type: Report from Study
  Country: CA (occurrence: CA)
  Receive Date: 20230601
  Receipt Date: 20230601
  Transmission Date: 20230721
  Serious: Yes (Other)
  Sender: FDA-Public Use
  Company Number: CA-CELLTRION INC.-2023CA010371

PATIENT

DRUGS (2)
  1. TRUXIMA [Suspect]
     Active Substance: RITUXIMAB-ABBS
     Indication: Immune thrombocytopenia
     Dosage: 937 MG, X4WEEKS
     Route: 042
  2. PREDNISONE [Concomitant]
     Active Substance: PREDNISONE

REACTIONS (2)
  - Immune thrombocytopenia [Unknown]
  - Off label use [Unknown]
